FAERS Safety Report 10809471 (Version 1)
Quarter: 2015Q1

REPORT INFORMATION
  Report Type: Spontaneous
  Country: US (occurrence: None)
  Receive Date: 20150212
  Receipt Date: 20150212
  Transmission Date: 20150721
  Serious: No
  Sender: FDA-Public Use
  Company Number: None

PATIENT
  Age: 50 Year
  Sex: Female

DRUGS (1)
  1. COPAXONE [Suspect]
     Active Substance: GLATIRAMER ACETATE
     Indication: MULTIPLE SCLEROSIS
     Route: 058
     Dates: start: 20141007, end: 20150209

REACTIONS (4)
  - Therapy change [None]
  - Dyspnoea [None]
  - Drug intolerance [None]
  - Palpitations [None]

NARRATIVE: CASE EVENT DATE: 20150201
